FAERS Safety Report 24193563 (Version 1)
Quarter: 2024Q3

REPORT INFORMATION
  Report Type: Spontaneous
  Country: AU (occurrence: AU)
  Receive Date: 20240809
  Receipt Date: 20240809
  Transmission Date: 20241016
  Serious: Yes (Other)
  Sender: RANBAXY
  Company Number: AU-SUN PHARMACEUTICAL INDUSTRIES LTD-2024RR-461528

PATIENT
  Age: 59 Year
  Sex: Female

DRUGS (8)
  1. OXALIPLATIN [Suspect]
     Active Substance: OXALIPLATIN
     Indication: Chemotherapy
     Dosage: UNK
     Route: 065
     Dates: start: 202109, end: 202112
  2. OXALIPLATIN [Suspect]
     Active Substance: OXALIPLATIN
     Indication: Rectal adenocarcinoma
  3. CAPECITABINE [Suspect]
     Active Substance: CAPECITABINE
     Indication: Rectal adenocarcinoma
     Dosage: UNK
     Route: 048
     Dates: start: 202201, end: 202202
  4. CAPECITABINE [Suspect]
     Active Substance: CAPECITABINE
     Indication: Chemotherapy
  5. CAPECITABINE [Suspect]
     Active Substance: CAPECITABINE
     Indication: Radiotherapy
  6. LEUCOVORIN [Suspect]
     Active Substance: LEUCOVORIN\LEUCOVORIN CALCIUM
     Indication: Chemotherapy
     Dosage: UNK
     Route: 065
     Dates: start: 202109, end: 202112
  7. FLUOROURACIL [Suspect]
     Active Substance: FLUOROURACIL
     Indication: Chemotherapy
     Dosage: UNK
     Route: 065
     Dates: start: 202109, end: 202112
  8. FLUOROURACIL [Suspect]
     Active Substance: FLUOROURACIL
     Indication: Rectal adenocarcinoma

REACTIONS (13)
  - Fatigue [Unknown]
  - Pain [Unknown]
  - Neuralgia [Unknown]
  - Nausea [Unknown]
  - Insomnia [Unknown]
  - Night sweats [Unknown]
  - Cognitive disorder [Unknown]
  - Depressed mood [Unknown]
  - Neutrophil count [Unknown]
  - Constipation [Unknown]
  - Mouth ulceration [Unknown]
  - Disease recurrence [Unknown]
  - Radiation skin injury [Recovered/Resolved]
